FAERS Safety Report 6412854-8 (Version None)
Quarter: 2009Q4

REPORT INFORMATION
  Report Type: 
  Country: None (occurrence: None)
  Receive Date: 20091023
  Receipt Date: 20091015
  Transmission Date: 20100525
  Serious: Yes (Death, Other)
  Sender: FDA-Public Use
  Company Number: US-BAXTER-2009BH016116

PATIENT
  Sex: Male

DRUGS (1)
  1. HEPARIN SODIUM INJECTION [Suspect]
     Indication: THROMBOSIS PROPHYLAXIS
     Route: 042
     Dates: start: 20080101

REACTIONS (10)
  - BALANCE DISORDER [None]
  - COMA [None]
  - DEATH [None]
  - DECREASED APPETITE [None]
  - DIARRHOEA [None]
  - HEADACHE [None]
  - HYPERSENSITIVITY [None]
  - HYPOTENSION [None]
  - NAUSEA [None]
  - UNRESPONSIVE TO STIMULI [None]
